FAERS Safety Report 7781052-8 (Version None)
Quarter: 2011Q3

REPORT INFORMATION
  Report Type: 
  Country: None (occurrence: None)
  Receive Date: 20110927
  Receipt Date: 20110920
  Transmission Date: 20111222
  Serious: Yes (Hospitalization, Other)
  Sender: FDA-Public Use
  Company Number: US-ABBOTT-11P-163-0854955-00

PATIENT
  Age: 60 Year
  Sex: Female

DRUGS (15)
  1. LEVOTHYROXINE SODIUM [Concomitant]
     Dosage: DOSE REDUCED
  2. PROTONIX [Concomitant]
     Indication: PRODUCT USED FOR UNKNOWN INDICATION
  3. PREMARIN [Concomitant]
     Indication: PRODUCT USED FOR UNKNOWN INDICATION
     Dates: start: 20100218
  4. LIPITOR [Concomitant]
     Indication: ARTERIAL OCCLUSIVE DISEASE
  5. TACLONEX [Concomitant]
     Indication: PSORIASIS
     Dates: start: 20060101
  6. LEVOTHYROXINE SODIUM [Concomitant]
     Indication: HYPOTHYROIDISM
     Dosage: DAILY DOSE: 25MCG
     Dates: start: 20080501
  7. ASPIRIN [Concomitant]
     Indication: CAROTID ARTERIOSCLEROSIS
     Dosage: DAILY OR EVERY OTHER DAY
     Route: 048
     Dates: start: 20110901
  8. HUMIRA [Suspect]
     Indication: PSORIASIS
     Route: 058
     Dates: start: 20090403
  9. ALBUTEROL [Concomitant]
     Indication: ASTHMA
     Dates: start: 20100101
  10. LAMICTAL [Concomitant]
     Indication: ANXIETY
     Dates: start: 20070516
  11. ASPIRIN [Concomitant]
     Indication: ARTERIAL OCCLUSIVE DISEASE
  12. ALBUTEROL [Concomitant]
     Dates: start: 20100101
  13. LIPITOR [Concomitant]
     Indication: CAROTID ARTERIOSCLEROSIS
     Route: 048
     Dates: start: 20110901
  14. METHOTREXATE [Suspect]
     Indication: PRODUCT USED FOR UNKNOWN INDICATION
     Dates: start: 20070101, end: 20090601
  15. RESTASIS [Concomitant]
     Indication: DRY EYE
     Dosage: 1 DROP PER EYE QHS
     Dates: start: 20081201

REACTIONS (18)
  - OSTEOARTHRITIS [None]
  - BLOOD CHOLESTEROL INCREASED [None]
  - CAROTID ARTERIOSCLEROSIS [None]
  - FREE FATTY ACIDS INCREASED [None]
  - PAIN IN JAW [None]
  - HYPERTENSION [None]
  - ASTHMA [None]
  - MUSCLE SPASMS [None]
  - INFLAMMATORY MARKER INCREASED [None]
  - PSORIASIS [None]
  - HEPATIC ENZYME INCREASED [None]
  - INJECTION SITE URTICARIA [None]
  - LARYNGITIS [None]
  - NEURALGIA [None]
  - BLOOD INSULIN INCREASED [None]
  - NERVE ROOT INJURY [None]
  - ANXIETY [None]
  - CAROTID ARTERY OCCLUSION [None]
